FAERS Safety Report 5035379-3 (Version None)
Quarter: 2006Q2

REPORT INFORMATION
  Report Type: 
  Country: None (occurrence: None)
  Receive Date: 20060627
  Receipt Date: 20060622
  Transmission Date: 20061013
  Serious: Yes (Life-Threatening, Other)
  Sender: FDA-Public Use
  Company Number: US-MERCK-0606USA04393

PATIENT
  Age: 36 Year
  Sex: Male

DRUGS (6)
  1. PROPECIA [Suspect]
     Indication: ALOPECIA
     Route: 048
  2. SUCCINIMIDE [Concomitant]
     Route: 065
  3. CHOLINE [Concomitant]
     Route: 065
  4. SUDAFED [Concomitant]
     Route: 065
  5. FLONASE [Concomitant]
     Route: 065
  6. ALLEGRA [Concomitant]
     Route: 065

REACTIONS (2)
  - NEUROMUSCULAR BLOCKADE [None]
  - SLEEP APNOEA SYNDROME [None]
